FAERS Safety Report 15606037 (Version 2)
Quarter: 2018Q4

REPORT INFORMATION
  Report Type: Report from Study
  Country: None (occurrence: DK)
  Receive Date: 20181112
  Receipt Date: 20181121
  Transmission Date: 20190205
  Serious: Yes (Life-Threatening)
  Sender: FDA-Public Use
  Company Number: DK-BAUSCH-BL-2018-030697

PATIENT
  Age: 42 Year
  Sex: Female

DRUGS (2)
  1. IBUPROFEN. [Suspect]
     Active Substance: IBUPROFEN
     Indication: PAIN
     Dosage: 400 MG, PRN (AS NEEDED) (1 X 400 MG/DAY)
     Route: 048
  2. DICLOFENAC [Suspect]
     Active Substance: DICLOFENAC
     Indication: PAIN
     Dosage: 100 MG, PRN (AS NEEDED) (2 X 50 MG/DAY)
     Route: 048

REACTIONS (2)
  - Product prescribing error [Unknown]
  - Gastrointestinal haemorrhage [Unknown]
